FAERS Safety Report 21512210 (Version 9)
Quarter: 2023Q4

REPORT INFORMATION
  Report Type: Report from Study
  Country: US (occurrence: US)
  Receive Date: 20221027
  Receipt Date: 20231003
  Transmission Date: 20240110
  Serious: Yes (Other)
  Sender: FDA-Public Use
  Company Number: US-002147023-NVSC2022US241566

PATIENT
  Sex: Female

DRUGS (1)
  1. KESIMPTA [Suspect]
     Active Substance: OFATUMUMAB
     Indication: Relapsing multiple sclerosis
     Dosage: UNK
     Route: 065
     Dates: start: 20221021

REACTIONS (16)
  - Tunnel vision [Unknown]
  - Seizure [Unknown]
  - Nausea [Unknown]
  - Visual impairment [Unknown]
  - Memory impairment [Not Recovered/Not Resolved]
  - Pain [Not Recovered/Not Resolved]
  - Hyperacusis [Unknown]
  - Glycosylated haemoglobin increased [Unknown]
  - Urinary tract infection [Unknown]
  - Migraine [Unknown]
  - Eructation [Unknown]
  - Diarrhoea [Unknown]
  - Fatigue [Unknown]
  - Aphasia [Unknown]
  - Dizziness [Unknown]
  - Paraesthesia [Not Recovered/Not Resolved]
